FAERS Safety Report 6699009-7 (Version None)
Quarter: 2010Q2

REPORT INFORMATION
  Report Type: 
  Country: None (occurrence: None)
  Receive Date: 20100427
  Receipt Date: 20100419
  Transmission Date: 20101027
  Serious: Yes (Other)
  Sender: FDA-Public Use
  Company Number: FR-PFIZER INC-2010048762

PATIENT
  Age: 48 Year
  Sex: Male

DRUGS (1)
  1. TAHOR [Suspect]
     Dosage: 20 MG
     Dates: start: 20100301

REACTIONS (1)
  - BONE PAIN [None]
